FAERS Safety Report 7577896-8 (Version None)
Quarter: 2011Q2

REPORT INFORMATION
  Report Type: 
  Country: None (occurrence: None)
  Receive Date: 20110621
  Receipt Date: 20110606
  Transmission Date: 20111010
  Serious: Yes (Hospitalization, Other)
  Sender: FDA-Public Use
  Company Number: AUR-APL-2011-02715

PATIENT
  Age: 57 Year
  Sex: Male

DRUGS (11)
  1. CARVEDILOL [Concomitant]
  2. NITROGLYCERIN [Concomitant]
  3. SIMVASTATIN [Suspect]
     Indication: HYPERCHOLESTEROLAEMIA
     Dosage: ORAL
     Route: 048
     Dates: start: 20060724, end: 20110522
  4. AMLODIPINE [Concomitant]
  5. ISOSORBIDE MONONITRATE [Concomitant]
  6. RAMIPRIL [Concomitant]
  7. TRIMETHOPRIM [Concomitant]
  8. ASPIRIN [Concomitant]
  9. RANOLAZINE [Suspect]
     Indication: ANGINA PECTORIS
     Dosage: 1000 MG (500 MG, 2 IN 1 D), ORAL, 750 MG (375 MG, 2 IN 1 D), ORAL
     Route: 048
     Dates: start: 20110506, end: 20110522
  10. RANOLAZINE [Suspect]
     Indication: ANGINA PECTORIS
     Dosage: 1000 MG (500 MG, 2 IN 1 D), ORAL, 750 MG (375 MG, 2 IN 1 D), ORAL
     Route: 048
     Dates: start: 20110407, end: 20110505
  11. NAFTIDROPFURYL OXALATE (NAFTIDROFURYL OXALATE) [Concomitant]

REACTIONS (7)
  - BLOOD UREA INCREASED [None]
  - CHROMATURIA [None]
  - ARTHRALGIA [None]
  - VOMITING [None]
  - MUSCULOSKELETAL PAIN [None]
  - MALAISE [None]
  - RHABDOMYOLYSIS [None]
